FAERS Safety Report 9831434 (Version 1)
Quarter: 2014Q1

REPORT INFORMATION
  Report Type: Spontaneous
  Country: US (occurrence: US)
  Receive Date: 20140121
  Receipt Date: 20140121
  Transmission Date: 20141002
  Serious: Yes (Hospitalization, Other)
  Sender: FDA-Public Use
  Company Number: US-AMGEN-USASP2014002470

PATIENT
  Age: 65 Year
  Sex: Female

DRUGS (11)
  1. NEULASTA [Suspect]
     Indication: PRODUCT USED FOR UNKNOWN INDICATION
     Dosage: UNK
     Route: 065
  2. CARBOPLATIN [Concomitant]
     Indication: LUNG NEOPLASM MALIGNANT
     Dosage: UNK
     Dates: start: 201005, end: 20100726
  3. CARBOPLATIN [Concomitant]
     Dosage: UNK
     Dates: start: 201101
  4. TAXOL [Concomitant]
     Indication: LUNG NEOPLASM MALIGNANT
     Dosage: UNK
     Dates: start: 201005, end: 20100726
  5. TAXOL [Concomitant]
     Dosage: UNK
     Dates: start: 201101
  6. CISPLATIN [Concomitant]
     Indication: LUNG NEOPLASM MALIGNANT
     Dosage: UNK
     Dates: start: 201010
  7. ALIMTA [Concomitant]
     Indication: LUNG NEOPLASM MALIGNANT
     Dosage: UNK
     Dates: start: 201010
  8. AVASTIN                            /01555201/ [Concomitant]
     Indication: LUNG NEOPLASM MALIGNANT
     Dosage: UNK
     Dates: start: 201101
  9. TARCEVA [Concomitant]
     Indication: LUNG NEOPLASM MALIGNANT
     Dosage: UNK
     Dates: start: 201106, end: 201109
  10. NAVELBINE [Concomitant]
     Indication: LUNG NEOPLASM MALIGNANT
     Dosage: UNK
     Dates: end: 201310
  11. GEMZAR [Concomitant]
     Indication: LUNG NEOPLASM MALIGNANT
     Dosage: ON 1 WEEK, OFF 1 WEEK
     Dates: start: 201311

REACTIONS (5)
  - Lung carcinoma cell type unspecified stage IV [Unknown]
  - Loss of consciousness [Unknown]
  - Metastases to central nervous system [Unknown]
  - Metastases to lymph nodes [Unknown]
  - Neutrophil count decreased [Unknown]
